FAERS Safety Report 5993544-2 (Version None)
Quarter: 2008Q4

REPORT INFORMATION
  Report Type: 
  Country: None (occurrence: None)
  Receive Date: 20081212
  Receipt Date: 20081201
  Transmission Date: 20090506
  Serious: Yes (Hospitalization)
  Sender: FDA-Public Use
  Company Number: PHHY2008FR30659

PATIENT
  Sex: Male

DRUGS (8)
  1. TAREG [Suspect]
     Dosage: 160 MG, QD
     Route: 048
  2. NOCTRAN [Suspect]
     Dosage: 1 DF, QD
     Route: 048
     Dates: end: 20081016
  3. FLUDEX [Suspect]
     Dosage: 1.5 MG, QD
     Route: 048
  4. SELOKEN ZOC [Suspect]
     Dosage: 100 MG, BID
     Route: 048
     Dates: end: 20081027
  5. PROPOFAN [Concomitant]
     Route: 048
  6. KARDEGIC [Concomitant]
     Dosage: UNK
     Route: 048
  7. TAHOR [Concomitant]
     Dosage: 40 MG, QD
     Route: 048
     Dates: end: 20081016
  8. PLAVIX [Concomitant]
     Dosage: 75 MG, QD
     Route: 048

REACTIONS (4)
  - AGITATION [None]
  - BALANCE DISORDER [None]
  - DRUG INTERACTION [None]
  - FALL [None]
